FAERS Safety Report 4351044-X (Version None)
Quarter: 2004Q2

REPORT INFORMATION
  Report Type: 
  Country: None (occurrence: None)
  Receive Date: 20040427
  Receipt Date: 20040414
  Transmission Date: 20050107
  Serious: Yes (Hospitalization)
  Sender: FDA-Public Use
  Company Number: 2004PK00672

PATIENT
  Age: 10 Day
  Sex: Male
  Weight: 3 kg

DRUGS (1)
  1. CARBOSTESIN ^ASTRA^ [Suspect]
     Indication: ANAESTHESIA
     Dosage: 0.4 ML/KG

REACTIONS (4)
  - ACQUIRED METHAEMOGLOBINAEMIA [None]
  - ANAESTHETIC COMPLICATION [None]
  - NEONATAL DISORDER [None]
  - PROCEDURAL COMPLICATION [None]
